FAERS Safety Report 23921875 (Version 1)
Quarter: 2024Q2

REPORT INFORMATION
  Report Type: Spontaneous
  Country: JP (occurrence: JP)
  Receive Date: 20240530
  Receipt Date: 20240530
  Transmission Date: 20240716
  Serious: Yes (Other)
  Sender: FDA-Public Use
  Company Number: JP-UCBJ-CD202404761UCBPHAPROD

PATIENT

DRUGS (1)
  1. FINTEPLA [Suspect]
     Active Substance: FENFLURAMINE
     Indication: Lennox-Gastaut syndrome
     Dosage: 0.03 MILLILITER PER DAY
     Route: 048

REACTIONS (2)
  - Epilepsy [Unknown]
  - Decreased appetite [Unknown]
